FAERS Safety Report 6437089-4 (Version None)
Quarter: 2009Q4

REPORT INFORMATION
  Report Type: 
  Country: None (occurrence: None)
  Receive Date: 20091112
  Receipt Date: 20091029
  Transmission Date: 20100525
  Serious: Yes (Hospitalization, Other)
  Sender: FDA-Public Use
  Company Number: PHHY2009DE01535

PATIENT
  Age: 84 Year
  Sex: Female

DRUGS (9)
  1. METOPROLOL [Suspect]
     Indication: HYPERTENSION
     Dosage: 100 MG, 2 IN ONE DAY
     Route: 048
  2. LISINOPRIL COMP CT [Suspect]
     Dosage: UNK
  3. AMLODIPINE [Suspect]
     Indication: HYPERTENSION
     Dosage: 5 MG
  4. NITRO-SPRAY [Suspect]
     Indication: HYPERTENSION
     Dosage: 0.41 MG, 1 IN 1 DAY
     Route: 002
     Dates: end: 20080612
  5. MOXONIDINE [Suspect]
     Indication: HYPERTENSION
     Dosage: .2 MG
  6. ASPIRIN [Concomitant]
     Indication: INFARCTION
     Dosage: 100 MG, 1 IN 1 DAY
     Route: 048
     Dates: start: 20010101
  7. KEPPRA [Concomitant]
     Indication: INFARCTION
     Dosage: 500 MG, 2 IN 1 DAY
     Route: 048
  8. PANTOPRAZOLE SODIUM [Concomitant]
     Indication: PROPHYLAXIS
     Dosage: 20 MG, 1 IN ONE DAY
     Route: 048
  9. SIMVASTATIN [Concomitant]
     Indication: THROMBOSIS PROPHYLAXIS
     Dosage: 20 MG, 1 IN ONE DAY
     Route: 048

REACTIONS (8)
  - ARRHYTHMIA [None]
  - BLOOD PRESSURE AMBULATORY ABNORMAL [None]
  - BLOOD SODIUM DECREASED [None]
  - FALL [None]
  - HAEMATOCRIT DECREASED [None]
  - HYPOTENSION [None]
  - SINUS BRADYCARDIA [None]
  - SYNCOPE [None]
